FAERS Safety Report 12037620 (Version 2)
Quarter: 2016Q1

REPORT INFORMATION
  Report Type: Spontaneous
  Country: JP (occurrence: JP)
  Receive Date: 20160208
  Receipt Date: 20160215
  Transmission Date: 20160526
  Serious: Yes (Death, Other)
  Sender: FDA-Public Use
  Company Number: JP-ACCORD-037629

PATIENT
  Age: 62 Year
  Sex: Male
  Weight: 66 kg

DRUGS (4)
  1. FOLINIC ACID [Suspect]
     Active Substance: LEUCOVORIN
     Indication: COLON CANCER
     Dosage: 400 MG/M2, OVER 120 MINUTES
  2. FLUOROURACIL. [Suspect]
     Active Substance: FLUOROURACIL
     Indication: COLON CANCER
     Dosage: 5-FU 400 MG/M2 IV BOLUS, THEN 2,400 MG/M2 IV INFUSION, OVER 46 HOURS?FOLFOX6
     Route: 042
  3. OXALIPLATIN. [Suspect]
     Active Substance: OXALIPLATIN
     Indication: COLON CANCER
     Dosage: 85 MG/M2 INTRAVENOUSLY (IV), OVER 90 MINUTES
     Route: 042
  4. PANITUMUMAB [Suspect]
     Active Substance: PANITUMUMAB
     Indication: COLON CANCER
     Dosage: 5 MG/KG IV INFUSION OVER ONE HOUR
     Route: 042

REACTIONS (5)
  - Nausea [Recovered/Resolved]
  - Coma [Recovered/Resolved]
  - Hyperammonaemic encephalopathy [Recovered/Resolved]
  - Cardiac failure acute [Fatal]
  - Dermatitis acneiform [Unknown]
